FAERS Safety Report 16384218 (Version 2)
Quarter: 2019Q2

REPORT INFORMATION
  Report Type: Report from Study
  Country: US (occurrence: US)
  Receive Date: 20190603
  Receipt Date: 20190625
  Transmission Date: 20190711
  Serious: Yes (Other)
  Sender: FDA-Public Use
  Company Number: US-BAYER-2019-084620

PATIENT
  Age: 61 Year
  Sex: Male

DRUGS (2)
  1. STIVARGA [Suspect]
     Active Substance: REGORAFENIB
     Indication: COLORECTAL CANCER
     Dosage: 160 MG, QD TAKE 4 TABLETS (160 MG)
     Route: 048
     Dates: start: 20190415, end: 20190506
  2. STIVARGA [Suspect]
     Active Substance: REGORAFENIB
     Indication: COLORECTAL CANCER
     Dosage: 40 MG, QD
     Route: 048
     Dates: start: 20190521

REACTIONS (11)
  - Dehydration [Recovering/Resolving]
  - Oral pain [Recovering/Resolving]
  - Product use issue [Not Recovered/Not Resolved]
  - Decreased appetite [Recovering/Resolving]
  - Neuropathy peripheral [Recovering/Resolving]
  - Nausea [Not Recovered/Not Resolved]
  - Fatigue [Recovering/Resolving]
  - Taste disorder [Not Recovered/Not Resolved]
  - Headache [Recovering/Resolving]
  - Dizziness [Not Recovered/Not Resolved]
  - Weight decreased [Recovering/Resolving]

NARRATIVE: CASE EVENT DATE: 2019
